FAERS Safety Report 26135298 (Version 1)
Quarter: 2025Q4

REPORT INFORMATION
  Report Type: Spontaneous
  Country: US (occurrence: None)
  Receive Date: 20251208
  Receipt Date: 20251208
  Transmission Date: 20260117
  Serious: Yes (Hospitalization)
  Sender: FDA-CTU
  Company Number: None

PATIENT
  Age: 69 Year
  Sex: Female

DRUGS (1)
  1. ELTROMBOPAG [Suspect]
     Active Substance: ELTROMBOPAG
     Indication: Immune thrombocytopenia
     Dosage: 150MG  DAILY ORAL
     Route: 048
     Dates: start: 20240607

REACTIONS (2)
  - Urinary tract infection [None]
  - Renal impairment [None]

NARRATIVE: CASE EVENT DATE: 20251125
